FAERS Safety Report 5449486-4 (Version None)
Quarter: 2007Q3

REPORT INFORMATION
  Report Type: 
  Country: None (occurrence: None)
  Receive Date: 20070907
  Receipt Date: 20070821
  Transmission Date: 20080115
  Serious: Yes (Disabling)
  Sender: FDA-Public Use
  Company Number: STI-2007-01346

PATIENT
  Age: 41 Year
  Sex: Female

DRUGS (1)
  1. 056A CLARIDERM CREAM (HYDROQUINONE) (HYDROQUINONE) [Suspect]
     Dosage: ?? (AT NIGHT) TOPICAL
     Route: 061
     Dates: start: 20060301

REACTIONS (11)
  - ARTHRALGIA [None]
  - ARTHRITIS GONOCOCCAL [None]
  - IMPAIRED WORK ABILITY [None]
  - LOCALISED INFECTION [None]
  - OEDEMA [None]
  - OEDEMA PERIPHERAL [None]
  - PAIN IN EXTREMITY [None]
  - PRURIGO [None]
  - SENSORY LOSS [None]
  - SKIN IRRITATION [None]
  - SYNOVITIS [None]
